FAERS Safety Report 5063558-8 (Version None)
Quarter: 2006Q3

REPORT INFORMATION
  Report Type: 
  Country: None (occurrence: None)
  Receive Date: 20060727
  Receipt Date: 20060714
  Transmission Date: 20061208
  Serious: Yes (Other)
  Sender: FDA-Public Use
  Company Number: US-KINGPHARMUSA00001-K200600925

PATIENT
  Age: 50 Year
  Sex: Male

DRUGS (1)
  1. SKELAXIN [Suspect]

REACTIONS (1)
  - CONVULSION [None]
